FAERS Safety Report 10299594 (Version 2)
Quarter: 2014Q3

REPORT INFORMATION
  Report Type: Spontaneous
  Country: FR (occurrence: FR)
  Receive Date: 20140711
  Receipt Date: 20140711
  Transmission Date: 20150326
  Serious: Yes (Hospitalization, Other)
  Sender: FDA-Public Use
  Company Number: FR-ELI_LILLY_AND_COMPANY-FR201404007267

PATIENT
  Age: 63 Year
  Sex: Female
  Weight: 50 kg

DRUGS (3)
  1. IMOVANE [Concomitant]
     Active Substance: ZOPICLONE
     Dosage: 1 DF, QD
     Route: 065
  2. PARACETAMOL [Concomitant]
     Active Substance: ACETAMINOPHEN
     Dosage: 500 MG, OTHER ( 6 CAPSULES DAILY)
     Route: 065
  3. ZYPADHERA [Suspect]
     Active Substance: OLANZAPINE PAMOATE
     Indication: SCHIZOAFFECTIVE DISORDER
     Dosage: 300 MG, EVERY 2 WEEKS
     Route: 030
     Dates: start: 20121127

REACTIONS (10)
  - Dysarthria [Recovered/Resolved]
  - Hypertension [Recovered/Resolved]
  - Psychomotor hyperactivity [Recovered/Resolved]
  - Wrong technique in drug usage process [Recovered/Resolved]
  - General physical health deterioration [Recovered/Resolved]
  - Anxiety [Recovered/Resolved]
  - Dry mouth [Unknown]
  - Dehydration [Recovered/Resolved]
  - Somnolence [Recovered/Resolved]
  - Confusional state [Recovered/Resolved]

NARRATIVE: CASE EVENT DATE: 20140408
